FAERS Safety Report 10558042 (Version 1)
Quarter: 2014Q4

REPORT INFORMATION
  Report Type: Spontaneous
  Country: US (occurrence: US)
  Receive Date: 20141031
  Receipt Date: 20141031
  Transmission Date: 20150529
  Serious: Yes (Death, Life-Threatening, Hospitalization)
  Sender: FDA-Public Use
  Company Number: US-BRISTOL-MYERS SQUIBB COMPANY-21522206

PATIENT
  Age: 71 Year
  Sex: Male
  Weight: 89 kg

DRUGS (12)
  1. DIOVAN [Concomitant]
     Active Substance: VALSARTAN
  2. METAMUCIL [Concomitant]
     Active Substance: PLANTAGO SEED
  3. CRESTOR [Concomitant]
     Active Substance: ROSUVASTATIN CALCIUM
  4. FOLIC ACID. [Concomitant]
     Active Substance: FOLIC ACID
  5. IBUPROFEN. [Concomitant]
     Active Substance: IBUPROFEN
  6. ANUSOL [Concomitant]
  7. LEVOTHYROXINE [Concomitant]
     Active Substance: LEVOTHYROXINE
  8. YERVOY [Suspect]
     Active Substance: IPILIMUMAB
     Indication: METASTATIC MALIGNANT MELANOMA
     Dosage: LAST DOSE ON 03-SEP-2014
     Dates: start: 20140724
  9. METOPROLOL [Concomitant]
     Active Substance: METOPROLOL
  10. IMODIUM [Concomitant]
     Active Substance: LOPERAMIDE HYDROCHLORIDE
  11. ASPIRIN. [Concomitant]
     Active Substance: ASPIRIN
  12. LOMOTIL [Concomitant]
     Active Substance: ATROPINE SULFATE\DIPHENOXYLATE HYDROCHLORIDE

REACTIONS (2)
  - Post procedural haemorrhage [Fatal]
  - Colitis [Fatal]

NARRATIVE: CASE EVENT DATE: 20140930
